FAERS Safety Report 7508914-0 (Version None)
Quarter: 2011Q2

REPORT INFORMATION
  Report Type: 
  Country: None (occurrence: None)
  Receive Date: 20110527
  Receipt Date: 20110518
  Transmission Date: 20111010
  Serious: Yes (Other)
  Sender: FDA-Public Use
  Company Number: PHHY2011US42775

PATIENT
  Sex: Female

DRUGS (8)
  1. BACLOFEN [Concomitant]
     Dosage: UNK
  2. PROMETHAZINE [Concomitant]
     Dosage: UNK
  3. RISPERIDONE [Concomitant]
  4. NAPROXEN [Concomitant]
  5. GILENYA [Suspect]
     Dosage: 0.5 MG, QD
     Route: 048
  6. CLONAZEPAM [Concomitant]
     Dosage: UNK
  7. SERTRALINE HYDROCHLORIDE [Concomitant]
     Dosage: UNK
  8. GABAPENTIN [Suspect]
     Dosage: UNK

REACTIONS (5)
  - CRYING [None]
  - PAIN [None]
  - FORMICATION [None]
  - HEMIPLEGIA [None]
  - DIARRHOEA [None]
